FAERS Safety Report 7842820-7 (Version None)
Quarter: 2011Q4

REPORT INFORMATION
  Report Type: 
  Country: None (occurrence: None)
  Receive Date: 20111025
  Receipt Date: 20111019
  Transmission Date: 20120403
  Serious: Yes (Other)
  Sender: FDA-Public Use
  Company Number: US-PFIZER INC-2011252582

PATIENT
  Sex: Female
  Weight: 58.05 kg

DRUGS (2)
  1. CENTRUM SILVER ULTRA WOMEN'S [Suspect]
     Indication: SUPPLEMENTATION THERAPY
     Dosage: UNK
  2. AROMASIN [Interacting]
     Indication: NEOPLASM MALIGNANT
     Dosage: UNK

REACTIONS (4)
  - NEOPLASM MALIGNANT [None]
  - BODY HEIGHT DECREASED [None]
  - DRUG INTERACTION [None]
  - GASTRIC DISORDER [None]
